FAERS Safety Report 19734540 (Version 1)
Quarter: 2021Q3

REPORT INFORMATION
  Report Type: Spontaneous
  Country: US (occurrence: US)
  Receive Date: 20210823
  Receipt Date: 20210823
  Transmission Date: 20211014
  Serious: No
  Sender: FDA-Public Use
  Company Number: US-GLAXOSMITHKLINE-US2021175303

PATIENT
  Sex: Female

DRUGS (1)
  1. BREO ELLIPTA [Suspect]
     Active Substance: FLUTICASONE FUROATE\VILANTEROL TRIFENATATE
     Indication: RESPIRATORY DISORDER
     Dosage: 1 PUFF(S), QD 200/25 MCG
     Route: 055
     Dates: start: 202108

REACTIONS (2)
  - Off label use [Unknown]
  - Stomatitis [Not Recovered/Not Resolved]
